FAERS Safety Report 7621646-3 (Version None)
Quarter: 2011Q3

REPORT INFORMATION
  Report Type: 
  Country: None (occurrence: None)
  Receive Date: 20110719
  Receipt Date: 20101108
  Transmission Date: 20111222
  Serious: Yes (Hospitalization)
  Sender: FDA-Public Use
  Company Number: JP-BAYER-201015254BYL

PATIENT
  Age: 69 Year
  Sex: Male
  Weight: 67 kg

DRUGS (15)
  1. DIGOXIN [Concomitant]
     Dosage: 0.125 MG (DAILY DOSE), , ORAL
     Route: 048
     Dates: start: 20030101, end: 20101014
  2. VANCOMYCIN [Concomitant]
     Indication: INFECTIOUS PERITONITIS
     Dosage: 2 G (DAILY DOSE), , INTRAPERITONEAL
     Route: 033
     Dates: start: 20100924, end: 20100925
  3. LASIX [Concomitant]
     Dosage: 120 MG (DAILY DOSE), , ORAL
     Route: 048
     Dates: start: 19940101, end: 20101014
  4. METOPROLOL TARTRATE [Concomitant]
     Dosage: 60 MG (DAILY DOSE), , ORAL
     Route: 048
  5. AVELOX [Suspect]
     Indication: INFECTIOUS PERITONITIS
     Dosage: 400 MG (DAILY DOSE), , ORAL
     Route: 048
     Dates: start: 20100903, end: 20100924
  6. AMARYL [Concomitant]
     Indication: DIABETES MELLITUS
     Dosage: 1 MG (DAILY DOSE), , ORAL
     Route: 048
     Dates: start: 20100501, end: 20101014
  7. WARFARIN SODIUM [Concomitant]
     Dosage: 2 MG (DAILY DOSE), , ORAL
     Route: 048
     Dates: start: 20030101, end: 20101014
  8. TOBRACIN [Concomitant]
     Indication: INFECTIOUS PERITONITIS
     Dosage: 40 MG (DAILY DOSE), , INTRAPERICARD.
     Route: 032
     Dates: start: 20100924, end: 20100926
  9. NOVORAPID [Concomitant]
     Indication: DIABETES MELLITUS
     Route: 058
     Dates: start: 20050101, end: 20101014
  10. ASPIRIN [Concomitant]
     Dosage: 100 MG (DAILY DOSE), , ORAL
     Route: 048
     Dates: start: 20030101, end: 20101014
  11. AVELOX [Suspect]
     Dosage: 400 MG (DAILY DOSE), , ORAL
     Route: 048
     Dates: start: 20101015, end: 20101021
  12. FERROUS CITRATE [Concomitant]
     Dosage: 100 MG (DAILY DOSE), , ORAL
     Route: 048
     Dates: start: 19940101, end: 20101014
  13. LANSOPRAZOLE [Concomitant]
     Dosage: 15 MG (DAILY DOSE), , ORAL
     Route: 048
     Dates: end: 20101014
  14. FAROM [Concomitant]
     Indication: INFECTIOUS PERITONITIS
     Dosage: 600 MG (DAILY DOSE), , ORAL
     Route: 048
     Dates: start: 20100927, end: 20101008
  15. TALION [Concomitant]
     Dosage: 20 MG (DAILY DOSE), , ORAL
     Route: 048
     Dates: end: 20101014

REACTIONS (3)
  - ALTERED STATE OF CONSCIOUSNESS [None]
  - HYPOGLYCAEMIA [None]
  - HYPERAMYLASAEMIA [None]
